FAERS Safety Report 7461956-6 (Version None)
Quarter: 2011Q2

REPORT INFORMATION
  Report Type: 
  Country: None (occurrence: None)
  Receive Date: 20110506
  Receipt Date: 20101229
  Transmission Date: 20111010
  Serious: Yes (Other)
  Sender: FDA-Public Use
  Company Number: US-BAYER-201021205NA

PATIENT
  Age: 25 Year
  Sex: Female
  Weight: 83.447 kg

DRUGS (10)
  1. DARVOCET-N 50 [Concomitant]
  2. YAZ [Suspect]
     Indication: CONTRACEPTION
     Dosage: UNK UNK, QD
     Route: 048
     Dates: start: 20060901
  3. PREVACID [Concomitant]
     Indication: GASTROINTESTINAL DISORDER
     Dosage: 30 MG, QD
     Route: 048
     Dates: start: 20070401
  4. PROPOXYPHENE NAPSYLATE W/ ACETAMINOPHEN [Concomitant]
     Indication: PAIN
     Dosage: UNK UNK, PRN
     Dates: start: 20070501
  5. YAZ [Suspect]
  6. YAZ [Suspect]
     Dosage: UNK
     Dates: end: 20090701
  7. PROMETHAZINE HYDROCHLORIDE [Concomitant]
     Indication: MULTIPLE ALLERGIES
     Dosage: UNK UNK, QD
     Route: 048
     Dates: start: 20070501
  8. YAZ [Suspect]
  9. VITAMINS [Concomitant]
     Indication: MEDICAL DIET
     Route: 048
  10. DIFLUCAN [Concomitant]

REACTIONS (6)
  - VOMITING [None]
  - ABDOMINAL PAIN UPPER [None]
  - NAUSEA [None]
  - GALLBLADDER CHOLESTEROLOSIS [None]
  - CHOLECYSTITIS CHRONIC [None]
  - CHOLELITHIASIS [None]
